FAERS Safety Report 4800550-X (Version None)
Quarter: 2005Q4

REPORT INFORMATION
  Report Type: 
  Country: None (occurrence: None)
  Receive Date: 20051017
  Receipt Date: 20051006
  Transmission Date: 20060501
  Serious: Yes (Disabling)
  Sender: FDA-Public Use
  Company Number: PR-MERCK-0510USA05921

PATIENT
  Sex: Female

DRUGS (1)
  1. VIOXX [Suspect]
     Route: 048

REACTIONS (8)
  - ASTHENIA [None]
  - CARDIAC DISORDER [None]
  - CHEST PAIN [None]
  - DEPRESSION [None]
  - FATIGUE [None]
  - OEDEMA PERIPHERAL [None]
  - PAIN IN EXTREMITY [None]
  - RENAL DISORDER [None]
